FAERS Safety Report 9691693 (Version 1)
Quarter: 2013Q4

REPORT INFORMATION
  Report Type: Spontaneous
  Country: PT (occurrence: PT)
  Receive Date: 20131115
  Receipt Date: 20131115
  Transmission Date: 20140711
  Serious: Yes (Other)
  Sender: FDA-Public Use
  Company Number: PT-B.I. PHARMACEUTICALS,INC./RIDGEFIELD-2013-BI-37033GD

PATIENT
  Age: 64 Year
  Sex: Male

DRUGS (4)
  1. IPRATROPIUMBROMID [Suspect]
  2. TIOTROPIUM [Suspect]
     Indication: CHRONIC OBSTRUCTIVE PULMONARY DISEASE
  3. PULMOVENT [Suspect]
     Indication: CHRONIC OBSTRUCTIVE PULMONARY DISEASE
  4. MOMETASONE [Suspect]
     Indication: CHRONIC OBSTRUCTIVE PULMONARY DISEASE

REACTIONS (9)
  - Respiratory failure [Unknown]
  - Bronchospasm [Unknown]
  - Stress cardiomyopathy [Recovered/Resolved]
  - Chest pain [Unknown]
  - Hyperhidrosis [Unknown]
  - Pallor [Unknown]
  - Sinus tachycardia [Unknown]
  - Bundle branch block right [Unknown]
  - Pneumonia [Unknown]
